FAERS Safety Report 6421412-0 (Version None)
Quarter: 2009Q4

REPORT INFORMATION
  Report Type: 
  Country: None (occurrence: None)
  Receive Date: 20091030
  Receipt Date: 20091026
  Transmission Date: 20100525
  Serious: Yes (Death)
  Sender: FDA-Public Use
  Company Number: JP-BRISTOL-MYERS SQUIBB COMPANY-14775175

PATIENT
  Age: 43 Year
  Sex: Female

DRUGS (6)
  1. REYATAZ [Suspect]
     Indication: HIV INFECTION
     Route: 048
     Dates: start: 20060328, end: 20081118
  2. ZERIT [Suspect]
     Indication: HIV INFECTION
     Dates: start: 20080425, end: 20081118
  3. RITONAVIR [Suspect]
     Indication: HIV INFECTION
     Dates: start: 20060328, end: 20081118
  4. LAMIVUDINE [Suspect]
     Indication: HIV INFECTION
     Dates: start: 20060328, end: 20081118
  5. EMTRICITABINE [Suspect]
  6. FAMOTIDINE [Concomitant]
     Dates: start: 20060509, end: 20081118

REACTIONS (3)
  - CERVIX CARCINOMA [None]
  - METABOLIC ACIDOSIS [None]
  - RENAL IMPAIRMENT [None]
